FAERS Safety Report 4376522-9 (Version None)
Quarter: 2004Q2

REPORT INFORMATION
  Report Type: 
  Country: None (occurrence: None)
  Receive Date: 20040614
  Receipt Date: 20030409
  Transmission Date: 20050107
  Serious: Yes (Hospitalization)
  Sender: FDA-Public Use
  Company Number: US-BRISTOL-MYERS SQUIBB COMPANY-12233607

PATIENT
  Age: 29 Year
  Sex: Female

DRUGS (4)
  1. ARIPIPRAZOLE [Suspect]
     Indication: SCHIZOPHRENIA
     Dosage: PATIENT RECEIVED ONLY ONE DOSE.
     Route: 048
     Dates: start: 20030203, end: 20030204
  2. QUETIAPINE [Concomitant]
     Dates: start: 20021113
  3. LORAZEPAM [Concomitant]
     Dates: start: 20021106
  4. TEMAZEPAM [Concomitant]
     Dates: start: 20020102

REACTIONS (2)
  - ABNORMAL BEHAVIOUR [None]
  - VERTIGO [None]
